FAERS Safety Report 6352329-8 (Version None)
Quarter: 2009Q3

REPORT INFORMATION
  Report Type: 
  Country: None (occurrence: None)
  Receive Date: 20090912
  Receipt Date: 20090622
  Transmission Date: 20100115
  Serious: No
  Sender: FDA-Public Use
  Company Number: US-ABBOTT-08P-163-0435171-00

PATIENT
  Sex: Female
  Weight: 76.272 kg

DRUGS (11)
  1. HUMIRA [Suspect]
     Indication: CROHN'S DISEASE
     Route: 058
     Dates: start: 20080109
  2. HUMIRA [Suspect]
     Route: 058
     Dates: start: 20080110
  3. HUMIRA [Suspect]
     Route: 058
     Dates: start: 20080123
  4. MESALAZINE [Concomitant]
     Indication: CROHN'S DISEASE
     Route: 048
     Dates: start: 20040101
  5. FOLIC ACID [Concomitant]
     Indication: MEDICAL DIET
     Dates: start: 20040101
  6. MERCAPTOPURINE [Concomitant]
     Indication: CROHN'S DISEASE
     Dates: start: 20040101
  7. VENLAFAXINE HYDROCHLORIDE [Concomitant]
     Indication: ANXIETY
     Dates: start: 20040101
  8. ESTRADIOL [Concomitant]
     Indication: HORMONE REPLACEMENT THERAPY
     Route: 061
     Dates: start: 20060101
  9. PROGESTERONE [Concomitant]
     Indication: HORMONE REPLACEMENT THERAPY
     Dosage: 1ST 10 DAYS OF MONTH
     Dates: start: 20060101
  10. LORATADINE [Concomitant]
     Indication: HYPERSENSITIVITY
     Route: 048
     Dates: start: 20040101
  11. LANSOPRAZOLE [Concomitant]
     Indication: CROHN'S DISEASE
     Dates: start: 20040101

REACTIONS (7)
  - INCORRECT DOSE ADMINISTERED [None]
  - INJECTION SITE ERYTHEMA [None]
  - INJECTION SITE EXTRAVASATION [None]
  - INJECTION SITE HAEMATOMA [None]
  - INJECTION SITE PAIN [None]
  - INJECTION SITE PRURITUS [None]
  - INJECTION SITE WARMTH [None]
